FAERS Safety Report 5120395-3 (Version None)
Quarter: 2006Q4

REPORT INFORMATION
  Report Type: 
  Country: None (occurrence: None)
  Receive Date: 20061004
  Receipt Date: 20060929
  Transmission Date: 20070319
  Serious: Yes (Other)
  Sender: FDA-Public Use
  Company Number: CA-GLAXOSMITHKLINE-A0622217A

PATIENT
  Age: 38 Year
  Sex: Male

DRUGS (3)
  1. LAMICTAL [Suspect]
     Dosage: 450MG PER DAY
  2. VALPROIC ACID [Concomitant]
     Dosage: 1250MG PER DAY
  3. PHENYTOIN [Concomitant]

REACTIONS (8)
  - CONVULSION [None]
  - DIZZINESS [None]
  - DRUG INEFFECTIVE [None]
  - FALL [None]
  - MIDDLE INSOMNIA [None]
  - SYNCOPE [None]
  - TOOTH FRACTURE [None]
  - WRIST FRACTURE [None]
